FAERS Safety Report 24782719 (Version 2)
Quarter: 2025Q1

REPORT INFORMATION
  Report Type: Spontaneous
  Country: CA (occurrence: CA)
  Receive Date: 20241227
  Receipt Date: 20250203
  Transmission Date: 20250409
  Serious: Yes (Hospitalization)
  Sender: PFIZER
  Company Number: CA-PFIZER INC-202400328903

PATIENT
  Age: 71 Year
  Sex: Male

DRUGS (1)
  1. RUXIENCE [Suspect]
     Active Substance: RITUXIMAB-PVVR
     Route: 042
     Dates: start: 20241217

REACTIONS (2)
  - Endotracheal intubation [Unknown]
  - Off label use [Unknown]

NARRATIVE: CASE EVENT DATE: 20241201
